FAERS Safety Report 9275533 (Version 1)
Quarter: 2013Q2

REPORT INFORMATION
  Report Type: Spontaneous
  Country: CH (occurrence: CH)
  Receive Date: 20130507
  Receipt Date: 20130507
  Transmission Date: 20140414
  Serious: Yes (Other)
  Sender: FDA-Public Use
  Company Number: CHE-FOUGERA-2013FO000124

PATIENT
  Sex: Male

DRUGS (1)
  1. SOLARAZE [Suspect]
     Indication: ACTINIC KERATOSIS
     Route: 061
     Dates: start: 201212, end: 201303

REACTIONS (2)
  - Subdural haematoma [Unknown]
  - Vertigo [Unknown]
